FAERS Safety Report 14030585 (Version 1)
Quarter: 2017Q4

REPORT INFORMATION
  Report Type: Spontaneous
  Country: US (occurrence: US)
  Receive Date: 20171002
  Receipt Date: 20171002
  Transmission Date: 20180321
  Serious: No
  Sender: FDA-Public Use
  Company Number: US-009507513-1709USA014911

PATIENT

DRUGS (4)
  1. ISENTRESS [Suspect]
     Active Substance: RALTEGRAVIR POTASSIUM
     Dosage: UNK
     Route: 048
     Dates: start: 20170901
  2. ABACAVIR. [Concomitant]
     Active Substance: ABACAVIR
  3. BOOST [Suspect]
     Active Substance: DIETARY SUPPLEMENT
     Dosage: UNK
     Route: 048
     Dates: start: 201709
  4. LAMIVUDINE. [Concomitant]
     Active Substance: LAMIVUDINE

REACTIONS (2)
  - Wrong technique in product usage process [Unknown]
  - No adverse event [Unknown]

NARRATIVE: CASE EVENT DATE: 201709
